FAERS Safety Report 11976034 (Version 4)
Quarter: 2016Q1

REPORT INFORMATION
  Report Type: Report from Study
  Country: US (occurrence: US)
  Receive Date: 20160129
  Receipt Date: 20160317
  Transmission Date: 20160526
  Serious: Yes (Other)
  Sender: FDA-Public Use
  Company Number: US-ROCHE-1689331

PATIENT
  Age: 77 Year
  Sex: Female
  Weight: 91.71 kg

DRUGS (3)
  1. ESBRIET [Suspect]
     Active Substance: PIRFENIDONE
     Indication: IDIOPATHIC PULMONARY FIBROSIS
     Dosage: THREE CAPSULES THREE TIMES A DAY
     Route: 048
     Dates: start: 20160107, end: 20160125
  2. ALBUTEROL. [Concomitant]
     Active Substance: ALBUTEROL
  3. ESBRIET [Suspect]
     Active Substance: PIRFENIDONE
     Route: 048
     Dates: start: 20151216, end: 2015

REACTIONS (14)
  - Gastric disorder [Unknown]
  - Urinary incontinence [Recovered/Resolved]
  - Asthenia [Unknown]
  - Dizziness [Recovered/Resolved]
  - Malaise [Recovered/Resolved]
  - Loss of consciousness [Unknown]
  - Somnolence [Not Recovered/Not Resolved]
  - Vomiting [Recovered/Resolved]
  - Dizziness [Unknown]
  - Anal incontinence [Recovered/Resolved]
  - Muscular weakness [Recovering/Resolving]
  - Nausea [Unknown]
  - Dyspnoea [Not Recovered/Not Resolved]
  - Diarrhoea [Recovered/Resolved]

NARRATIVE: CASE EVENT DATE: 20160114
